FAERS Safety Report 6144730-2 (Version None)
Quarter: 2009Q2

REPORT INFORMATION
  Report Type: 
  Country: None (occurrence: None)
  Receive Date: 20090406
  Receipt Date: 20090326
  Transmission Date: 20091009
  Serious: Yes (Other)
  Sender: FDA-Public Use
  Company Number: CA-JNJFOC-20090307542

PATIENT
  Sex: Male
  Weight: 87.6 kg

DRUGS (2)
  1. REMICADE [Suspect]
     Indication: RHEUMATOID ARTHRITIS
     Dosage: TOTAL OF 10 DOSES TO 26-MAR-2009
     Route: 042
  2. METHOTREXATE SODIUM [Concomitant]

REACTIONS (1)
  - SQUAMOUS CELL CARCINOMA [None]
